FAERS Safety Report 6275976-0 (Version None)
Quarter: 2009Q3

REPORT INFORMATION
  Report Type: 
  Country: None (occurrence: None)
  Receive Date: 20090720
  Receipt Date: 20090702
  Transmission Date: 20100115
  Serious: Yes (Death)
  Sender: FDA-Public Use
  Company Number: 2009AL002565

PATIENT
  Age: 72 Year
  Sex: Female

DRUGS (22)
  1. DIGOXIN [Suspect]
     Dosage: 0.125MG, DAILY, PO
     Route: 048
     Dates: start: 20061024, end: 20070601
  2. ZINC SULFATE [Concomitant]
  3. AMBIEN [Concomitant]
  4. PREMARIN [Concomitant]
  5. HYDROCODONE [Concomitant]
  6. COREG [Concomitant]
  7. NORVASC [Concomitant]
  8. ISOSORBIDE DINITRATE [Concomitant]
  9. TERAZOSIN [Concomitant]
  10. POTASSIUM CHLORIDE [Concomitant]
  11. HYDRALAZINE HCL [Concomitant]
  12. METOCLOPRAMIDE [Concomitant]
  13. PREMARIN [Concomitant]
  14. DIATX [Concomitant]
  15. PREVACID [Concomitant]
  16. GLYCOLAX [Concomitant]
  17. COZAAR [Concomitant]
  18. WARFARIN SODIUM [Concomitant]
  19. NORVASC [Concomitant]
  20. CARAFATE [Concomitant]
  21. ZOLPIDEM [Concomitant]
  22. LIPITOR [Concomitant]

REACTIONS (2)
  - ECONOMIC PROBLEM [None]
  - INJURY [None]
